FAERS Safety Report 15228410 (Version 2)
Quarter: 2018Q3

REPORT INFORMATION
  Report Type: Report from Study
  Country: None (occurrence: FR)
  Receive Date: 20180801
  Receipt Date: 20180828
  Transmission Date: 20181010
  Serious: Yes (Hospitalization)
  Sender: FDA-Public Use
  Company Number: FR-ABBVIE-18P-056-2430894-00

PATIENT
  Age: 74 Year
  Sex: Male
  Weight: 84.4 kg

DRUGS (21)
  1. VENETOCLAX. [Suspect]
     Active Substance: VENETOCLAX
     Route: 048
     Dates: start: 20180124, end: 20180709
  2. UVEDOSE [Concomitant]
     Active Substance: CHOLECALCIFEROL
     Indication: VITAMIN SUPPLEMENTATION
     Dosage: (1 AMPOULE EVERY 3 MONTHS
     Route: 048
     Dates: start: 2010
  3. SOTALEX [Concomitant]
     Active Substance: SOTALOL
     Indication: ARRHYTHMIA
     Route: 048
     Dates: start: 1993
  4. MOVICOLON [Concomitant]
     Active Substance: POLYETHYLENE GLYCOL 3350\POTASSIUM CHLORIDE\SODIUM BICARBONATE\SODIUM CHLORIDE
     Indication: CONSTIPATION
     Route: 048
     Dates: start: 20180127
  5. AZACITIDINE. [Suspect]
     Active Substance: AZACITIDINE
     Indication: ACUTE MYELOID LEUKAEMIA
     Dosage: DAY 1?7 OF ALL CYCLES, CYCLE = 28
     Route: 058
     Dates: start: 20180122, end: 20180123
  6. AZACITIDINE. [Suspect]
     Active Substance: AZACITIDINE
     Dosage: DAY 1?7 OF ALL CYCLES, CYCLE = 28
     Route: 058
     Dates: start: 20180124, end: 20180128
  7. JANUVIA [Concomitant]
     Active Substance: SITAGLIPTIN PHOSPHATE
     Indication: DIABETES MELLITUS
     Route: 048
     Dates: start: 20180324
  8. AZACITIDINE. [Suspect]
     Active Substance: AZACITIDINE
     Dosage: DAY 1?7 OF ALL CYCLES, CYCLE = 28
     Route: 058
     Dates: start: 20180219, end: 20180617
  9. METFORMINE [Concomitant]
     Active Substance: METFORMIN HYDROCHLORIDE
     Indication: DIABETES MELLITUS
     Route: 048
     Dates: start: 2011
  10. ELISOR [Concomitant]
     Active Substance: PRAVASTATIN SODIUM
     Indication: HYPERCHOLESTEROLAEMIA
     Route: 048
     Dates: start: 20180219
  11. PANTOPRAZOLE [Concomitant]
     Active Substance: PANTOPRAZOLE
     Indication: PROPHYLAXIS
     Route: 048
     Dates: start: 201802
  12. MAG 2 [Concomitant]
     Active Substance: MAGNESIUM CHLORIDE
     Indication: HYPOMAGNESAEMIA
     Route: 048
     Dates: start: 20180319
  13. XELEVIA [Concomitant]
     Active Substance: SITAGLIPTIN PHOSPHATE
     Indication: DIABETES MELLITUS
     Route: 048
     Dates: start: 2017
  14. PARIET [Concomitant]
     Active Substance: RABEPRAZOLE SODIUM
     Indication: GASTRITIS PROPHYLAXIS
     Route: 048
     Dates: start: 2012
  15. DEXERYL [Concomitant]
     Indication: INJECTION SITE PRURITUS
     Route: 061
     Dates: start: 20180127
  16. DEXERYL [Concomitant]
     Indication: INJECTION SITE PRURITUS
  17. ISOPHANE INSULIN [Concomitant]
     Active Substance: INSULIN NOS
     Indication: DIABETES MELLITUS
     Route: 058
     Dates: start: 20180319
  18. VENETOCLAX. [Suspect]
     Active Substance: VENETOCLAX
     Indication: ACUTE MYELOID LEUKAEMIA
     Route: 048
     Dates: start: 20180122, end: 20180122
  19. VENETOCLAX. [Suspect]
     Active Substance: VENETOCLAX
     Route: 048
     Dates: start: 20180123, end: 20180123
  20. RAMIPRIL. [Concomitant]
     Active Substance: RAMIPRIL
     Indication: HYPERTENSION
     Route: 048
     Dates: start: 2014
  21. UROREC [Concomitant]
     Active Substance: SILODOSIN
     Indication: BLADDER CATHETERISATION
     Route: 048
     Dates: start: 20180329

REACTIONS (2)
  - Hepatitis cholestatic [Not Recovered/Not Resolved]
  - Hepatitis [Not Recovered/Not Resolved]

NARRATIVE: CASE EVENT DATE: 20180708
